FAERS Safety Report 7288082-3 (Version None)
Quarter: 2011Q1

REPORT INFORMATION
  Report Type: 
  Country: None (occurrence: None)
  Receive Date: 20110211
  Receipt Date: 20110209
  Transmission Date: 20110831
  Serious: Yes (Death)
  Sender: FDA-Public Use
  Company Number: PHFR2010IE04356

PATIENT
  Sex: Male

DRUGS (7)
  1. CLOZARIL [Suspect]
     Dosage: 150 MG, BID
     Route: 048
     Dates: start: 19940801
  2. EPILIM [Concomitant]
     Indication: CONVULSION
     Dosage: 300 MG, BID
  3. ZOLPIDEM [Concomitant]
     Indication: INSOMNIA
     Dosage: 10 MG NOCTE, QD
     Route: 048
     Dates: start: 19990101
  4. CLOZARIL [Suspect]
     Indication: SCHIZOPHRENIA
     Dosage: UNK MG, UNK
     Route: 048
     Dates: start: 19940811
  5. DIAZEPAM [Concomitant]
     Dosage: 5 MG, BID
  6. PRAVASTATIN [Concomitant]
     Indication: HYPERLIPIDAEMIA
     Dosage: 20 MG NOCTE, QD
     Route: 048
     Dates: start: 20040101
  7. EPILIM [Concomitant]
     Dosage: 500 MG, BID
     Route: 048
     Dates: start: 20090701

REACTIONS (1)
  - SUDDEN DEATH [None]
